FAERS Safety Report 25245319 (Version 2)
Quarter: 2025Q2

REPORT INFORMATION
  Report Type: Spontaneous
  Country: RS (occurrence: RS)
  Receive Date: 20250428
  Receipt Date: 20250429
  Transmission Date: 20250716
  Serious: Yes (Death, Other)
  Sender: BAYER HEALTHCARE PHARMACEUTICALS INC.
  Company Number: RS-BAYER-2025A056576

PATIENT
  Sex: Male

DRUGS (2)
  1. ULTRAVIST [Suspect]
     Active Substance: IOPROMIDE
     Indication: Angiogram
  2. ULTRAVIST [Suspect]
     Active Substance: IOPROMIDE
     Indication: Limb injury

REACTIONS (5)
  - Death [Fatal]
  - Asphyxia [None]
  - Feeling hot [None]
  - General physical health deterioration [None]
  - Skin discolouration [None]

NARRATIVE: CASE EVENT DATE: 20250417
